FAERS Safety Report 21580000 (Version 1)
Quarter: 2022Q4

REPORT INFORMATION
  Report Type: Spontaneous
  Country: CN (occurrence: CN)
  Receive Date: 20221110
  Receipt Date: 20221110
  Transmission Date: 20230113
  Serious: Yes (Hospitalization, Other)
  Sender: FDA-Public Use
  Company Number: CN-PFIZER INC-PV202200100521

PATIENT
  Sex: Female
  Weight: 46 kg

DRUGS (2)
  1. EPIRUBICIN HYDROCHLORIDE [Suspect]
     Active Substance: EPIRUBICIN HYDROCHLORIDE
     Indication: Breast cancer
     Dosage: 75 MG/M2, EVERY 3 WEEKS
     Route: 041
     Dates: start: 20221012, end: 20221012
  2. CYCLOPHOSPHAMIDE [Suspect]
     Active Substance: CYCLOPHOSPHAMIDE
     Indication: Breast cancer
     Dosage: 600 MG/M2, EVERY 3 WEEKS
     Route: 041
     Dates: start: 20221012, end: 20221012

REACTIONS (2)
  - Hepatic function abnormal [Unknown]
  - Liver injury [Unknown]

NARRATIVE: CASE EVENT DATE: 20221102
